FAERS Safety Report 18524522 (Version 3)
Quarter: 2021Q1

REPORT INFORMATION
  Report Type: Spontaneous
  Country: DE (occurrence: DE)
  Receive Date: 20201120
  Receipt Date: 20210113
  Transmission Date: 20210428
  Serious: Yes (Hospitalization, Other)
  Sender: FDA-Public Use
  Company Number: DE-EMD SERONO-E2B_90081216

PATIENT
  Age: 33 Year
  Sex: Female

DRUGS (5)
  1. ORGALUTRAN [Suspect]
     Active Substance: GANIRELIX ACETATE
     Indication: ASSISTED REPRODUCTIVE TECHNOLOGY
  2. FLUOMIZIN [Suspect]
     Active Substance: DEQUALINIUM CHLORIDE
     Indication: ASSISTED REPRODUCTIVE TECHNOLOGY
  3. MENOGON [Suspect]
     Active Substance: MENOTROPINS
     Indication: ASSISTED REPRODUCTIVE TECHNOLOGY
  4. PUREGON                            /01348901/ [Suspect]
     Active Substance: FOLLITROPIN BETA
     Indication: ASSISTED REPRODUCTIVE TECHNOLOGY
  5. OVITRELLE [Suspect]
     Active Substance: CHORIOGONADOTROPIN ALFA
     Indication: ASSISTED REPRODUCTIVE TECHNOLOGY

REACTIONS (1)
  - Ovarian haemorrhage [Recovered/Resolved]

NARRATIVE: CASE EVENT DATE: 202010
